FAERS Safety Report 5571761-3 (Version None)
Quarter: 2007Q4

REPORT INFORMATION
  Report Type: 
  Country: None (occurrence: None)
  Receive Date: 20071221
  Receipt Date: 20071218
  Transmission Date: 20080405
  Serious: Yes (Other)
  Sender: FDA-Public Use
  Company Number: B0495571A

PATIENT
  Sex: Female
  Weight: 119 kg

DRUGS (2)
  1. AVANDIA [Suspect]
     Dosage: 4MG PER DAY
     Route: 048
     Dates: start: 20060401
  2. TRIAMCINOLONE [Suspect]
     Dosage: 40MG WEEKLY
     Route: 042
     Dates: start: 20070901, end: 20071103

REACTIONS (5)
  - CARDIAC FAILURE [None]
  - DECREASED ACTIVITY [None]
  - DYSPNOEA EXERTIONAL [None]
  - FLUID RETENTION [None]
  - WEIGHT INCREASED [None]
